FAERS Safety Report 10068791 (Version 5)
Quarter: 2014Q2

REPORT INFORMATION
  Report Type: Report from Study
  Country: US (occurrence: US)
  Receive Date: 20140409
  Receipt Date: 20140610
  Transmission Date: 20141212
  Serious: Yes (Hospitalization)
  Sender: FDA-Public Use
  Company Number: US-PFIZER INC-2014082179

PATIENT
  Age: 44 Year
  Sex: Female
  Weight: 159.6 kg

DRUGS (12)
  1. VARENICLINE TARTRATE [Suspect]
     Indication: SMOKING CESSATION THERAPY
     Dosage: 1 MG, 2X/DAY
     Route: 048
     Dates: start: 20140213, end: 20140326
  2. IBUPROFEN [Concomitant]
     Indication: OSTEOARTHRITIS
     Dosage: 200 MG, AS NEEDED
     Route: 048
     Dates: start: 2004
  3. VENTOLIN HFA [Concomitant]
     Indication: CHRONIC OBSTRUCTIVE PULMONARY DISEASE
     Dosage: 1 DF (PUFF), AS NEEDED
     Route: 055
     Dates: start: 2009
  4. TUMS [Concomitant]
     Indication: DYSPEPSIA
     Dosage: 500 MG, AS NEEDED
     Route: 048
     Dates: start: 2009
  5. HYDROCHLOROTHIAZIDE [Concomitant]
     Indication: HYPERTENSION
     Dosage: 12.5 MG, 1X/DAY
     Route: 048
     Dates: start: 2009
  6. TRAZODONE [Concomitant]
     Indication: INSOMNIA
     Dosage: 100 MG, 1X/DAY, QHS
     Route: 048
     Dates: start: 2009
  7. CLONIDINE [Concomitant]
     Indication: HYPERTENSION
     Dosage: 0.2 MG, 1X/DAY
     Route: 048
     Dates: start: 2012
  8. ZOLOFT [Concomitant]
     Indication: MAJOR DEPRESSION
     Dosage: 50 MG, 1X/DAY
     Route: 048
     Dates: start: 201302
  9. OMEPRAZOLE [Concomitant]
     Indication: DYSPEPSIA
     Dosage: 20 MG, 1X/DAY
     Route: 048
     Dates: start: 201203
  10. FLUTICASONE PROPIONATE [Concomitant]
     Indication: CHRONIC OBSTRUCTIVE PULMONARY DISEASE
     Dosage: 250 UG AS NEEDED
     Route: 055
     Dates: start: 2010
  11. RISPERIDONE [Concomitant]
     Indication: DEPRESSION
     Dosage: 1 MG, ONCE DAILY AT BEDTIME
     Route: 048
     Dates: start: 20140312
  12. NORVASC [Concomitant]
     Indication: HYPERTENSION
     Dosage: 5 MG, 1X/DAY
     Route: 048
     Dates: start: 2010, end: 20140312

REACTIONS (2)
  - Hypertension [Recovered/Resolved]
  - Coronary artery occlusion [Recovered/Resolved]
